FAERS Safety Report 8158594-9 (Version None)
Quarter: 2012Q1

REPORT INFORMATION
  Report Type: 
  Country: None (occurrence: None)
  Receive Date: 20120217
  Receipt Date: 20120201
  Transmission Date: 20120608
  Serious: No
  Sender: FDA-Public Use
  Company Number: PERC20120023

PATIENT
  Age: 50 Year
  Sex: Female
  Weight: 56.6996 kg

DRUGS (4)
  1. LYRICA [Concomitant]
  2. PERCOCET [Suspect]
     Indication: PAIN
     Dosage: 40/1300 MG, 4 IN 1 D, ORAL
     Route: 048
     Dates: start: 20111201
  3. OPANA [Concomitant]
  4. VICOPROFEN (IBUPROFEN, HYDROCODONE BITARTRATE) [Concomitant]

REACTIONS (1)
  - DRUG INEFFECTIVE [None]
